FAERS Safety Report 17350876 (Version 1)
Quarter: 2020Q1

REPORT INFORMATION
  Report Type: Report from Study
  Country: US (occurrence: US)
  Receive Date: 20200130
  Receipt Date: 20200130
  Transmission Date: 20200409
  Serious: No
  Sender: FDA-Public Use
  Company Number: NVSC2020US022351

PATIENT
  Age: 67 Year
  Sex: Female

DRUGS (2)
  1. GLATOPA [Suspect]
     Active Substance: GLATIRAMER ACETATE
     Indication: MULTIPLE SCLEROSIS
     Dosage: 20 MG, Q72H
     Route: 058
     Dates: start: 20200117
  2. GLATOPA [Suspect]
     Active Substance: GLATIRAMER ACETATE
     Dosage: 40 MG (3X PER WEEK)
     Route: 058

REACTIONS (8)
  - Eye contusion [Recovering/Resolving]
  - Fall [Recovering/Resolving]
  - Tremor [Recovered/Resolved]
  - Injection site mass [Recovered/Resolved]
  - Nasal congestion [Unknown]
  - Dyspnoea [Recovering/Resolving]
  - Chills [Recovered/Resolved]
  - Injection site erythema [Recovered/Resolved]

NARRATIVE: CASE EVENT DATE: 20200123
